FAERS Safety Report 10205177 (Version 2)
Quarter: 2014Q2

REPORT INFORMATION
  Report Type: Spontaneous
  Country: RO (occurrence: RO)
  Receive Date: 20140529
  Receipt Date: 20140613
  Transmission Date: 20141212
  Serious: Yes (Hospitalization)
  Sender: FDA-Public Use
  Company Number: RO-ABBVIE-14P-135-1241616-00

PATIENT
  Age: 48 Year
  Sex: Female

DRUGS (4)
  1. HUMIRA [Suspect]
     Indication: RHEUMATOID ARTHRITIS
     Dates: start: 201206
  2. METHOTREXATE [Concomitant]
     Indication: RHEUMATOID ARTHRITIS
     Dates: start: 2005
  3. METHOTREXATE [Concomitant]
     Dates: start: 2007, end: 201206
  4. METHOTREXATE [Concomitant]
     Dates: start: 201206

REACTIONS (5)
  - Mobility decreased [Unknown]
  - Joint swelling [Unknown]
  - Musculoskeletal stiffness [Recovered/Resolved]
  - Drug ineffective [Unknown]
  - Arthralgia [Unknown]
